FAERS Safety Report 4854164-6 (Version None)
Quarter: 2005Q4

REPORT INFORMATION
  Report Type: 
  Country: None (occurrence: None)
  Receive Date: 20051125
  Receipt Date: 20050511
  Transmission Date: 20060501
  Serious: Yes (Hospitalization)
  Sender: FDA-Public Use
  Company Number: US-JNJFOC-20050503242

PATIENT
  Age: 18 Year
  Sex: Female

DRUGS (1)
  1. LEVAQUIN [Suspect]
     Indication: PNEUMONIA
     Dosage: 1 IN 24 HOUR, ORAL
     Route: 048
     Dates: start: 20050417, end: 20050417

REACTIONS (1)
  - STEVENS-JOHNSON SYNDROME [None]
